FAERS Safety Report 19566730 (Version 1)
Quarter: 2021Q3

REPORT INFORMATION
  Report Type: Report from Study
  Country: US (occurrence: US)
  Receive Date: 20210716
  Receipt Date: 20210716
  Transmission Date: 20211014
  Serious: Yes (Other)
  Sender: FDA-Public Use
  Company Number: US-SNT-000159

PATIENT
  Sex: Female

DRUGS (10)
  1. IBRUTINIB [Suspect]
     Active Substance: IBRUTINIB
     Indication: PRODUCT USED FOR UNKNOWN INDICATION
     Dosage: ON DAYS 8?26
     Route: 065
  2. ETHINYLESTRADIOL/ETHINYLESTRADIOLUM PROPANSULFO [Suspect]
     Active Substance: ETHINYL ESTRADIOL
     Indication: ORAL CONTRACEPTION
     Dosage: 30 MICROGRAM
     Route: 048
  3. MIDAZOLAM. [Suspect]
     Active Substance: MIDAZOLAM
     Indication: PRODUCT USED FOR UNKNOWN INDICATION
     Dosage: ON DAY 3
     Route: 065
  4. BUPROPION. [Suspect]
     Active Substance: BUPROPION
     Indication: PRODUCT USE IN UNAPPROVED INDICATION
     Dosage: 75 MG
     Route: 065
  5. ETHINYLESTRADIOL/ETHINYLESTRADIOLUM PROPANSULFO [Suspect]
     Active Substance: ETHINYL ESTRADIOL
     Indication: ORAL CONTRACEPTION
     Dosage: ON DAY 1
     Route: 048
  6. LEVONORGESTREL. [Suspect]
     Active Substance: LEVONORGESTREL
     Indication: ORAL CONTRACEPTION
     Dosage: ON DAY 1
     Route: 048
  7. MIDAZOLAM. [Suspect]
     Active Substance: MIDAZOLAM
     Indication: PRODUCT USE IN UNAPPROVED INDICATION
     Dosage: 2 MG
     Route: 065
  8. MIDAZOLAM. [Suspect]
     Active Substance: MIDAZOLAM
     Indication: PRODUCT USE IN UNAPPROVED INDICATION
     Dosage: 2 MG
     Route: 065
  9. LEVONORGESTREL. [Suspect]
     Active Substance: LEVONORGESTREL
     Indication: ORAL CONTRACEPTION
     Dosage: 150 MICROGRAM
     Route: 048
  10. BUPROPION. [Suspect]
     Active Substance: BUPROPION
     Indication: PRODUCT USE IN UNAPPROVED INDICATION
     Dosage: ON DAY 3
     Route: 065

REACTIONS (2)
  - Product use in unapproved indication [Unknown]
  - Rectal haemorrhage [Unknown]
